FAERS Safety Report 19862787 (Version 1)
Quarter: 2021Q3

REPORT INFORMATION
  Report Type: Spontaneous
  Country: CA (occurrence: CA)
  Receive Date: 20210921
  Receipt Date: 20210921
  Transmission Date: 20211014
  Serious: Yes (Other)
  Sender: FDA-Public Use
  Company Number: CA-NEBO-PC007404

PATIENT
  Age: 77 Year
  Sex: Male

DRUGS (1)
  1. MONOFERRIC [Suspect]
     Active Substance: FERRIC DERISOMALTOSE
     Indication: BLOOD IRON DECREASED
     Route: 058

REACTIONS (5)
  - Oxygen saturation decreased [Unknown]
  - Dyskinesia [Unknown]
  - Tachycardia [Unknown]
  - Incorrect route of product administration [Unknown]
  - Unresponsive to stimuli [Unknown]
